FAERS Safety Report 21983878 (Version 7)
Quarter: 2025Q1

REPORT INFORMATION
  Report Type: Report from Study
  Country: US (occurrence: US)
  Receive Date: 20230213
  Receipt Date: 20250211
  Transmission Date: 20250409
  Serious: Yes (Hospitalization, Other)
  Sender: ABBVIE
  Company Number: US-ABBVIE-4304512

PATIENT
  Age: 67 Year
  Sex: Female
  Weight: 81.646 kg

DRUGS (2)
  1. HUMIRA [Suspect]
     Active Substance: ADALIMUMAB
     Indication: Rheumatoid arthritis
     Route: 058
     Dates: start: 20230426
  2. HUMIRA [Suspect]
     Active Substance: ADALIMUMAB
     Route: 058
     Dates: start: 20180515

REACTIONS (17)
  - Knee arthroplasty [Recovering/Resolving]
  - Fatigue [Not Recovered/Not Resolved]
  - Skin abrasion [Recovered/Resolved]
  - Dyspnoea [Not Recovered/Not Resolved]
  - Peripheral swelling [Not Recovered/Not Resolved]
  - Disease recurrence [Unknown]
  - Knee arthroplasty [Unknown]
  - Haemarthrosis [Recovered/Resolved with Sequelae]
  - Joint effusion [Unknown]
  - Arthralgia [Unknown]
  - Erythema [Not Recovered/Not Resolved]
  - Joint swelling [Not Recovered/Not Resolved]
  - Joint adhesion [Recovered/Resolved with Sequelae]
  - Infection [Unknown]
  - Joint stiffness [Unknown]
  - Feeling hot [Not Recovered/Not Resolved]
  - Joint warmth [Not Recovered/Not Resolved]

NARRATIVE: CASE EVENT DATE: 20220101
